APPROVED DRUG PRODUCT: TROVAN
Active Ingredient: TROVAFLOXACIN MESYLATE
Strength: EQ 200MG BASE
Dosage Form/Route: TABLET;ORAL
Application: N020759 | Product #002
Applicant: PFIZER CENTRAL RESEARCH
Approved: Dec 18, 1997 | RLD: No | RS: No | Type: DISCN